FAERS Safety Report 10143826 (Version 2)
Quarter: 2014Q2

REPORT INFORMATION
  Report Type: Spontaneous
  Country: DE (occurrence: DE)
  Receive Date: 20140430
  Receipt Date: 20140520
  Transmission Date: 20141212
  Serious: Yes (Hospitalization)
  Sender: FDA-Public Use
  Company Number: DE-GLAXOSMITHKLINE-D0083786A

PATIENT
  Age: 83 Year
  Sex: Male

DRUGS (4)
  1. TAFINLAR [Suspect]
     Indication: METASTATIC MALIGNANT MELANOMA
     Dosage: 75MG TWICE PER DAY
     Route: 048
     Dates: start: 20140415, end: 20140416
  2. NIFEDIPINE [Concomitant]
     Route: 065
     Dates: start: 20140411
  3. METOPROLOL [Concomitant]
     Route: 065
  4. ASS [Concomitant]
     Dosage: 100MG PER DAY
     Route: 065

REACTIONS (3)
  - Atrial fibrillation [Recovered/Resolved]
  - Palpitations [Recovered/Resolved]
  - Chest discomfort [Recovered/Resolved]
